FAERS Safety Report 8217208-X (Version None)
Quarter: 2012Q1

REPORT INFORMATION
  Report Type: 
  Country: None (occurrence: None)
  Receive Date: 20120319
  Receipt Date: 20120309
  Transmission Date: 20120608
  Serious: Yes (Other)
  Sender: FDA-Public Use
  Company Number: NL-ACCORD-012694

PATIENT

DRUGS (1)
  1. MYCOPHENOLATE MOFETIL [Suspect]

REACTIONS (1)
  - DYSGEUSIA [None]
